FAERS Safety Report 23485601 (Version 3)
Quarter: 2024Q1

REPORT INFORMATION
  Report Type: Spontaneous
  Country: US (occurrence: US)
  Receive Date: 20240206
  Receipt Date: 20240306
  Transmission Date: 20240410
  Serious: No
  Sender: FDA-Public Use
  Company Number: US-SANOFI-01925217

PATIENT
  Age: 71 Year
  Sex: Male

DRUGS (1)
  1. TOUJEO [Suspect]
     Active Substance: INSULIN GLARGINE
     Indication: Diabetes mellitus
     Dosage: 40 IU, QD

REACTIONS (4)
  - Visual impairment [Unknown]
  - Blood glucose increased [Recovering/Resolving]
  - Product dose omission issue [Recovering/Resolving]
  - Device mechanical issue [Unknown]
